FAERS Safety Report 24684604 (Version 2)
Quarter: 2025Q3

REPORT INFORMATION
  Report Type: Report from Study
  Country: US (occurrence: US)
  Receive Date: 20241202
  Receipt Date: 20250809
  Transmission Date: 20251021
  Serious: Yes (Hospitalization, Other)
  Sender: ALEXION PHARMACEUTICALS
  Company Number: US-AstraZeneca-CH-00757155A

PATIENT
  Sex: Male

DRUGS (1)
  1. BRILINTA [Suspect]
     Active Substance: TICAGRELOR
     Dosage: 90 MILLIGRAM, BID

REACTIONS (10)
  - Post-acute COVID-19 syndrome [Unknown]
  - Skin haemorrhage [Unknown]
  - Myalgia [Unknown]
  - Fatigue [Unknown]
  - Tenderness [Unknown]
  - Contusion [Unknown]
  - Pain in extremity [Unknown]
  - Asthenia [Unknown]
  - Feeling abnormal [Unknown]
  - Pain [Unknown]
